FAERS Safety Report 8494080-4 (Version None)
Quarter: 2012Q2

REPORT INFORMATION
  Report Type: 
  Country: None (occurrence: None)
  Receive Date: 20120629
  Receipt Date: 20120629
  Transmission Date: 20120825
  Serious: Yes (Other)
  Sender: FDA-Public Use
  Company Number: None

PATIENT
  Sex: Female
  Weight: 62.5964 kg

DRUGS (2)
  1. GABAPENTIN [Suspect]
     Indication: PAIN
     Dosage: 1 9PM PO
     Route: 048
     Dates: start: 20120619, end: 20120623
  2. HYDROCODONE 5/500 MALLINKRT [Suspect]
     Indication: PAIN
     Dosage: 1 EVERY 4-6 HRS AS N PO
     Route: 048
     Dates: start: 20110724, end: 20120528

REACTIONS (1)
  - ECHOLALIA [None]
